FAERS Safety Report 10214417 (Version 1)
Quarter: 2014Q2

REPORT INFORMATION
  Report Type: Spontaneous
  Country: US (occurrence: None)
  Receive Date: 20140602
  Receipt Date: 20140602
  Transmission Date: 20141212
  Serious: Yes (Other)
  Sender: FDA-Public Use
  Company Number: None

PATIENT
  Age: 57 Year
  Sex: Male
  Weight: 76.7 kg

DRUGS (14)
  1. SOVALDI 400 MG [Suspect]
     Indication: HEPATITIS C
     Route: 048
     Dates: start: 20090514, end: 20140530
  2. CALCIUM/VITD [Concomitant]
  3. DOXAZOSIN [Concomitant]
  4. VALSARTAN [Concomitant]
  5. IBUPROFEN [Concomitant]
  6. MVI [Concomitant]
  7. AMLODIPINE [Concomitant]
  8. OMEPRAZOLE [Concomitant]
  9. SOFOSBUVIR [Concomitant]
  10. DIAZEPAM [Concomitant]
  11. GARLIC [Concomitant]
  12. MELATONIN [Concomitant]
  13. RIBAVIRIN [Concomitant]
  14. TESTOSTERONE [Concomitant]

REACTIONS (2)
  - Priapism [None]
  - Drug interaction [None]
